FAERS Safety Report 14354046 (Version 1)
Quarter: 2018Q1

REPORT INFORMATION
  Report Type: Spontaneous
  Country: US (occurrence: US)
  Receive Date: 20180105
  Receipt Date: 20180105
  Transmission Date: 20180509
  Serious: Yes (Life-Threatening, Hospitalization, Other)
  Sender: FDA-Public Use
  Company Number: US-ZYDUS-018656

PATIENT
  Age: 10 Day
  Sex: Male
  Weight: 3.2 kg

DRUGS (13)
  1. LYPRESSIN [Concomitant]
     Active Substance: LYPRESSIN
     Indication: JUNCTIONAL ECTOPIC TACHYCARDIA
     Dosage: 0.0006 U/KG
     Route: 065
  2. AMIODARONE [Suspect]
     Active Substance: AMIODARONE
     Indication: ARRHYTHMIA SUPRAVENTRICULAR
     Route: 065
  3. DEXMEDETOMIDINE/DEXMEDETOMIDINE HYDROCHLORIDE [Suspect]
     Active Substance: DEXMEDETOMIDINE HYDROCHLORIDE
     Indication: SEDATION
     Route: 042
  4. MILRINONE [Concomitant]
     Active Substance: MILRINONE
     Indication: ARRHYTHMIA SUPRAVENTRICULAR
     Route: 042
  5. EPINEPHRINE. [Concomitant]
     Active Substance: EPINEPHRINE
     Indication: ARRHYTHMIA SUPRAVENTRICULAR
     Route: 042
  6. DEXMEDETOMIDINE/DEXMEDETOMIDINE HYDROCHLORIDE [Suspect]
     Active Substance: DEXMEDETOMIDINE HYDROCHLORIDE
     Indication: SEDATION
     Route: 042
  7. ALBUMIN HUMAN [Concomitant]
     Active Substance: ALBUMIN HUMAN
     Indication: JUNCTIONAL ECTOPIC TACHYCARDIA
     Dosage: 10 ML/KG
     Route: 065
  8. GLYCERYL TRINITRATE [Concomitant]
     Active Substance: NITROGLYCERIN
     Indication: ARRHYTHMIA SUPRAVENTRICULAR
     Route: 042
  9. EPINEPHRINE. [Concomitant]
     Active Substance: EPINEPHRINE
     Indication: ARRHYTHMIA SUPRAVENTRICULAR
     Route: 042
  10. AMIODARONE [Suspect]
     Active Substance: AMIODARONE
     Indication: ARRHYTHMIA SUPRAVENTRICULAR
     Route: 040
  11. ALUMINIUM HYDROXIDE/MAGNESIUM HYDROXIDE [Concomitant]
     Indication: ARRHYTHMIA SUPRAVENTRICULAR
     Dosage: BOLUS
     Route: 040
  12. DEXMEDETOMIDINE/DEXMEDETOMIDINE HYDROCHLORIDE [Suspect]
     Active Substance: DEXMEDETOMIDINE HYDROCHLORIDE
     Indication: SEDATION
     Route: 042
  13. LYPRESSIN [Concomitant]
     Active Substance: LYPRESSIN
     Indication: JUNCTIONAL ECTOPIC TACHYCARDIA
     Dosage: 0.0003 U/KG
     Route: 065

REACTIONS (5)
  - Bradycardia [Unknown]
  - Pulseless electrical activity [Unknown]
  - Cardiac arrest neonatal [Unknown]
  - Junctional ectopic tachycardia [Unknown]
  - Cough [Unknown]
